FAERS Safety Report 7538104-7 (Version None)
Quarter: 2011Q2

REPORT INFORMATION
  Report Type: 
  Country: None (occurrence: None)
  Receive Date: 20110609
  Receipt Date: 20010604
  Transmission Date: 20111010
  Serious: Yes (Death)
  Sender: FDA-Public Use
  Company Number: PHFR2001GB01149

PATIENT
  Sex: Male

DRUGS (4)
  1. LORAZEPAM [Concomitant]
     Route: 065
  2. CLOZAPINE [Suspect]
     Indication: SCHIZOPHRENIA
     Dosage: 900 MG, DAILY
     Route: 048
     Dates: start: 19961022
  3. ZOPICLONE [Concomitant]
     Route: 065
  4. FLUOXETINE HCL [Concomitant]
     Route: 065

REACTIONS (6)
  - HYPERTENSION [None]
  - MYOCARDIAL ISCHAEMIA [None]
  - CIRCULATORY COLLAPSE [None]
  - FATIGUE [None]
  - OEDEMA PERIPHERAL [None]
  - LETHARGY [None]
